FAERS Safety Report 4390411-5 (Version None)
Quarter: 2004Q2

REPORT INFORMATION
  Report Type: 
  Country: None (occurrence: None)
  Receive Date: 20040630
  Receipt Date: 20040616
  Transmission Date: 20050107
  Serious: Yes (Hospitalization, Other)
  Sender: FDA-Public Use
  Company Number: 2004039501

PATIENT
  Age: 72 Year
  Sex: Female
  Weight: 73.9363 kg

DRUGS (8)
  1. TIKOSYN [Suspect]
     Indication: ATRIAL FIBRILLATION
     Dosage: 1000 MCG (500 MCG, 2 IN 1 D), ORAL
     Route: 048
     Dates: start: 20020101
  2. DIGOXIN [Concomitant]
  3. LANSOPRAZOLE [Concomitant]
  4. TOLTERODINE L-TARTRATE (TOLTERODINE L-TARTRATE) [Concomitant]
  5. LISINOPRIL [Concomitant]
  6. BRIMONIDINE TARTRATE (BRIMONIDINE TARTRATE) [Concomitant]
  7. LATANOPROST [Concomitant]
  8. ACETAZOLAMIDE [Concomitant]

REACTIONS (8)
  - ATRIAL FIBRILLATION [None]
  - CATARACT [None]
  - CONDITION AGGRAVATED [None]
  - ELECTROCARDIOGRAM QT PROLONGED [None]
  - HAEMORRHAGE [None]
  - LABILE HYPERTENSION [None]
  - RECTAL POLYP [None]
  - SINUS BRADYCARDIA [None]
